FAERS Safety Report 5457886-1 (Version None)
Quarter: 2007Q3

REPORT INFORMATION
  Report Type: 
  Country: None (occurrence: None)
  Receive Date: 20070918
  Receipt Date: 20070906
  Transmission Date: 20080115
  Serious: Yes (Other)
  Sender: FDA-Public Use
  Company Number: FR-PFIZER INC-2007075589

PATIENT
  Age: 72 Year
  Sex: Male
  Weight: 79 kg

DRUGS (15)
  1. LYRICA [Suspect]
     Indication: SCIATICA
  2. POTASSIUM CHLORIDE [Concomitant]
  3. ALLOPURINOL [Concomitant]
  4. PRINZIDE [Concomitant]
  5. TRAMADOL HCL [Concomitant]
  6. HYDROCORTISONE [Concomitant]
  7. IDEOS [Concomitant]
  8. THERALENE [Concomitant]
  9. PLAVIX [Concomitant]
  10. TAHOR [Concomitant]
  11. FOSAMAX [Concomitant]
  12. LACRIGEL [Concomitant]
  13. OMIX [Concomitant]
  14. ANDROTARDYL [Concomitant]
  15. ACETAMINOPHEN [Concomitant]

REACTIONS (2)
  - DYSARTHRIA [None]
  - EPILEPSY [None]
